FAERS Safety Report 11849259 (Version 1)
Quarter: 2015Q4

REPORT INFORMATION
  Report Type: Spontaneous
  Country: DE (occurrence: DE)
  Receive Date: 20151218
  Receipt Date: 20151218
  Transmission Date: 20160305
  Serious: Yes (Other)
  Sender: FDA-Public Use
  Company Number: DE-ACTAVIS-2015-21569

PATIENT
  Sex: Male
  Weight: 72 kg

DRUGS (2)
  1. KENTERA (WATSON LABORATORIES) [Suspect]
     Active Substance: OXYBUTYNIN
     Indication: URINARY TRACT DISCOMFORT
     Dosage: UNK -CHANGE EVERY THREE DAYS
     Route: 062
     Dates: start: 20150928
  2. INSULIN [Concomitant]
     Active Substance: INSULIN NOS
     Indication: PRODUCT USED FOR UNKNOWN INDICATION
     Dosage: UNK
     Route: 065

REACTIONS (20)
  - Pruritus [Recovering/Resolving]
  - Visual impairment [Recovering/Resolving]
  - Constipation [Unknown]
  - Gait disturbance [Recovering/Resolving]
  - Micturition urgency [Recovering/Resolving]
  - Myopia [Recovering/Resolving]
  - Hyperglycaemia [Unknown]
  - Abdominal discomfort [Recovering/Resolving]
  - Back pain [Recovering/Resolving]
  - Glossitis [Recovering/Resolving]
  - Dry eye [Recovering/Resolving]
  - Dizziness [Recovering/Resolving]
  - Abdominal pain upper [Recovering/Resolving]
  - Dry mouth [Recovering/Resolving]
  - Dry throat [Recovering/Resolving]
  - Hair texture abnormal [Recovering/Resolving]
  - Penile pain [Recovering/Resolving]
  - Diarrhoea [Unknown]
  - Fatigue [Recovering/Resolving]
  - Pain of skin [Recovering/Resolving]

NARRATIVE: CASE EVENT DATE: 20150928
